FAERS Safety Report 18685453 (Version 1)
Quarter: 2020Q4

REPORT INFORMATION
  Report Type: Report from Study
  Country: US (occurrence: US)
  Receive Date: 20201230
  Receipt Date: 20201230
  Transmission Date: 20210114
  Serious: Yes (Hospitalization, Other)
  Sender: FDA-Public Use
  Company Number: US-TEVA-2020-US-1233590

PATIENT
  Age: 80 Year
  Sex: Female

DRUGS (7)
  1. CLOZAPINE TEVA [Suspect]
     Active Substance: CLOZAPINE
     Route: 048
     Dates: start: 20200430
  2. INSULIN [Concomitant]
     Active Substance: INSULIN NOS
     Indication: TYPE 2 DIABETES MELLITUS
  3. RIFAXIMIN. [Concomitant]
     Active Substance: RIFAXIMIN
     Indication: HEPATIC CIRRHOSIS
  4. CLOZAPINE TEVA [Suspect]
     Active Substance: CLOZAPINE
     Indication: SCHIZOPHRENIA
     Route: 048
     Dates: end: 20200430
  5. NADOLOL. [Concomitant]
     Active Substance: NADOLOL
     Indication: HEPATIC CIRRHOSIS
  6. CITALOPRAM [Concomitant]
     Active Substance: CITALOPRAM HYDROBROMIDE
     Indication: SCHIZOPHRENIA
  7. LACTOSE [Concomitant]
     Active Substance: LACTOSE
     Indication: HEPATIC CIRRHOSIS

REACTIONS (4)
  - Lethargy [Recovered/Resolved]
  - Agranulocytosis [Unknown]
  - Metabolic encephalopathy [Not Recovered/Not Resolved]
  - Confusional state [Recovered/Resolved]

NARRATIVE: CASE EVENT DATE: 20200501
